FAERS Safety Report 14996946 (Version 1)
Quarter: 2018Q2

REPORT INFORMATION
  Report Type: Spontaneous
  Country: US (occurrence: US)
  Receive Date: 20180611
  Receipt Date: 20180611
  Transmission Date: 20180711
  Serious: Yes (Death, Life-Threatening, Hospitalization, Disabling)
  Sender: FDA-Public Use
  Company Number: US-ANIPHARMA-2018-US-009697

PATIENT
  Age: 76 Year
  Sex: Female
  Weight: 72.58 kg

DRUGS (6)
  1. ^BABY ASPIRIN^ [Suspect]
     Active Substance: ASPIRIN
  2. LISINOPRIL. [Concomitant]
     Active Substance: LISINOPRIL
  3. ARIMIDEX [Suspect]
     Active Substance: ANASTROZOLE
     Indication: BREAST CANCER
     Dosage: ONE PER DAY
     Route: 048
     Dates: start: 201312, end: 20180513
  4. WARFARIN [Suspect]
     Active Substance: WARFARIN
  5. LOVASTATIN. [Concomitant]
     Active Substance: LOVASTATIN
  6. METOPROLOL. [Concomitant]
     Active Substance: METOPROLOL

REACTIONS (5)
  - Death [Fatal]
  - Loss of consciousness [Not Recovered/Not Resolved]
  - Cerebrovascular accident [Fatal]
  - Cerebral haemorrhage [Not Recovered/Not Resolved]
  - Brain death [Recovered/Resolved with Sequelae]

NARRATIVE: CASE EVENT DATE: 20180513
